FAERS Safety Report 5905345-1 (Version None)
Quarter: 2008Q4

REPORT INFORMATION
  Report Type: 
  Country: None (occurrence: None)
  Receive Date: 20081001
  Receipt Date: 20080929
  Transmission Date: 20090506
  Serious: Yes (Life-Threatening, Hospitalization)
  Sender: FDA-Public Use
  Company Number: FR-WYE-H05629308

PATIENT
  Sex: Female
  Weight: 48 kg

DRUGS (8)
  1. GEMTUZUMAB OZOGAMICIN [Suspect]
     Indication: ACUTE MYELOID LEUKAEMIA
     Route: 042
     Dates: start: 20070323, end: 20070323
  2. CYTARABINE [Suspect]
     Indication: ACUTE MYELOID LEUKAEMIA
     Dosage: 160 MG FREQUENCY NOT SPECIFIED (1120 MG CUMULATIVE DOSE)
     Route: 042
     Dates: start: 20070406, end: 20070412
  3. BACTRIM [Concomitant]
     Indication: FEBRILE NEUTROPENIA
     Route: 042
     Dates: start: 20070503, end: 20070511
  4. MITOXANTRONE [Suspect]
     Indication: ACUTE MYELOID LEUKAEMIA
     Dosage: 11 MG FREQUENCY UNSPECIFIED (33 MG CUMULATIVE DOSE)
     Route: 042
     Dates: start: 20070406, end: 20070410
  5. TARGOCID [Concomitant]
     Indication: FEBRILE NEUTROPENIA
     Route: 042
     Dates: start: 20070424, end: 20070505
  6. CASPOFUNGIN ACETATE [Concomitant]
     Indication: FEBRILE NEUTROPENIA
     Route: 042
     Dates: start: 20070424, end: 20070505
  7. ETOPOSIDE [Suspect]
     Indication: ACUTE MYELOID LEUKAEMIA
     Dosage: 160 MG FREQUENCY NOT SPECIFIED (480 MG CUMULATIVE DOSE)
     Route: 042
     Dates: start: 20070406, end: 20070408
  8. IMIPENEM [Concomitant]
     Indication: FEBRILE NEUTROPENIA
     Route: 042
     Dates: start: 20070425, end: 20070505

REACTIONS (2)
  - ACUTE RESPIRATORY DISTRESS SYNDROME [None]
  - LUNG DISORDER [None]
